FAERS Safety Report 7452372-1 (Version None)
Quarter: 2011Q2

REPORT INFORMATION
  Report Type: 
  Country: None (occurrence: None)
  Receive Date: 20110502
  Receipt Date: 20110426
  Transmission Date: 20111010
  Serious: Yes (Hospitalization)
  Sender: FDA-Public Use
  Company Number: CA-US-EMD SERONO, INC.-7040305

PATIENT
  Sex: Female

DRUGS (2)
  1. REBIF [Suspect]
     Indication: MULTIPLE SCLEROSIS
     Route: 058
     Dates: start: 20110128
  2. BACLOFEN [Concomitant]

REACTIONS (4)
  - LOCALISED INFECTION [None]
  - INJECTION SITE PARAESTHESIA [None]
  - MULTIPLE SCLEROSIS [None]
  - PAIN IN EXTREMITY [None]
